FAERS Safety Report 24678039 (Version 2)
Quarter: 2024Q4

REPORT INFORMATION
  Report Type: Spontaneous
  Country: US (occurrence: US)
  Receive Date: 20241129
  Receipt Date: 20241223
  Transmission Date: 20250115
  Serious: Yes (Other)
  Sender: CSL BEHRING
  Company Number: US-BEH-2024186656

PATIENT
  Sex: Female

DRUGS (2)
  1. HIZENTRA [Suspect]
     Active Substance: HUMAN IMMUNOGLOBULIN G
     Indication: Immunodeficiency common variable
     Dosage: 3 G, QW(STRENGTH: 0.2GM/ML) (1GM TOTAL)
     Route: 058
     Dates: start: 202101
  2. HIZENTRA [Suspect]
     Active Substance: HUMAN IMMUNOGLOBULIN G
     Dosage: 12 G, QW(STRENGTH: 0.2GM/ML) (4GM TOTAL)
     Route: 058
     Dates: start: 202101

REACTIONS (4)
  - Nephrolithiasis [Recovered/Resolved]
  - Laryngitis [Unknown]
  - Dysphonia [Unknown]
  - Oropharyngeal pain [Unknown]
